FAERS Safety Report 9011134 (Version 1)
Quarter: 2013Q1

REPORT INFORMATION
  Report Type: Spontaneous
  Country: US (occurrence: US)
  Receive Date: 20130109
  Receipt Date: 20130109
  Transmission Date: 20140127
  Serious: No
  Sender: FDA-Public Use
  Company Number: US-ABBOTT-12P-163-1001611-00

PATIENT
  Sex: Female

DRUGS (1)
  1. VICODIN [Suspect]
     Indication: PAIN
     Dosage: TOOK APPROXIMATELY 8 PILLS TOTAL

REACTIONS (4)
  - Rash pruritic [Unknown]
  - Sleep disorder [Unknown]
  - Drug ineffective [Unknown]
  - Hormone level abnormal [Unknown]
